FAERS Safety Report 21421696 (Version 1)
Quarter: 2022Q4

REPORT INFORMATION
  Report Type: Spontaneous
  Country: FR (occurrence: FR)
  Receive Date: 20221007
  Receipt Date: 20221007
  Transmission Date: 20230112
  Serious: Yes (Hospitalization)
  Sender: FDA-Public Use
  Company Number: None

PATIENT
  Age: 69 Year
  Sex: Male
  Weight: 75 kg

DRUGS (7)
  1. BISOPROLOL [Suspect]
     Active Substance: BISOPROLOL
     Indication: Hypertension
     Dosage: UNIT DOSE: 2.5 MG, FREQ TIME 1 DAY,
     Route: 065
  2. FUROSEMIDE [Suspect]
     Active Substance: FUROSEMIDE
     Indication: Hypertension
     Dosage: UNIT DOSE: 300 MG, FREQ TIME 1 DAY,
     Route: 065
  3. DILTIAZEM [Suspect]
     Active Substance: DILTIAZEM
     Indication: Hypertension
     Dosage: DILTIAZEM ARROW LP 300 MG, UNIT DOSE: 300 MG, FREQ TIME 1 DAY,
  4. DAPAGLIFLOZIN [Suspect]
     Active Substance: DAPAGLIFLOZIN
     Indication: Type 2 diabetes mellitus
     Dosage: UNIT DOSE: 10 MG, FREQ TIME 1 DAY, DURATION 115 DAYS
     Dates: start: 20211125, end: 20220320
  5. ENTRESTO [Suspect]
     Active Substance: SACUBITRIL\VALSARTAN
     Indication: Hypertension
     Dosage: UNIT DOSE: 2 DF, FREQ TIME 1 DAY, THERAPY START DATE: NASK, ENTRESTO 97 MG/103 MG
     Dates: end: 20220320
  6. ELIQUIS [Concomitant]
     Active Substance: APIXABAN
     Indication: Atrial fibrillation
     Dosage: UNIT DOSE: 10 MG, FREQ TIME: 1 DAYS
  7. SIMVASTATIN [Concomitant]
     Active Substance: SIMVASTATIN
     Indication: Product used for unknown indication
     Dosage: UNIT DOSE: 20 MG, FREQ TIME 1 DAY

REACTIONS (2)
  - Acute kidney injury [Recovered/Resolved]
  - Shock [Recovered/Resolved]

NARRATIVE: CASE EVENT DATE: 20220320
